FAERS Safety Report 16682446 (Version 1)
Quarter: 2019Q3

REPORT INFORMATION
  Report Type: Spontaneous
  Country: PL (occurrence: PL)
  Receive Date: 20190808
  Receipt Date: 20190808
  Transmission Date: 20191004
  Serious: Yes (Other)
  Sender: FDA-Public Use
  Company Number: PL-MYLANLABS-2019M1073053

PATIENT
  Age: 23 Year
  Sex: Female

DRUGS (2)
  1. PACLITAXEL. [Suspect]
     Active Substance: PACLITAXEL
     Indication: TRACHEAL CANCER
     Dosage: UNK
     Route: 065
     Dates: start: 201502, end: 201504
  2. CARBOPLATIN. [Suspect]
     Active Substance: CARBOPLATIN
     Indication: TRACHEAL CANCER
     Dosage: UNK
     Route: 065
     Dates: start: 201502, end: 201504

REACTIONS (2)
  - Metastases to lung [Unknown]
  - Product use in unapproved indication [Unknown]
